FAERS Safety Report 13230045 (Version 1)
Quarter: 2017Q1

REPORT INFORMATION
  Report Type: Spontaneous
  Country: US (occurrence: US)
  Receive Date: 20170213
  Receipt Date: 20170213
  Transmission Date: 20170428
  Serious: Yes (Life-Threatening, Hospitalization, Disabling)
  Sender: FDA-Public Use
  Company Number: None

PATIENT
  Age: 59 Year
  Sex: Female
  Weight: 113.8 kg

DRUGS (15)
  1. LEVOTHYROXIN [Concomitant]
     Active Substance: LEVOTHYROXINE
  2. CLONIDINE. [Concomitant]
     Active Substance: CLONIDINE
  3. WARFARIN [Concomitant]
     Active Substance: WARFARIN
  4. TYLENOL [Concomitant]
     Active Substance: ACETAMINOPHEN
  5. LOSARTEN [Concomitant]
     Active Substance: LOSARTAN
  6. VITAL D [Concomitant]
  7. METFORMIN [Concomitant]
     Active Substance: METFORMIN HYDROCHLORIDE
  8. ZOCOR [Concomitant]
     Active Substance: SIMVASTATIN
  9. OMEPRAZOLE. [Concomitant]
     Active Substance: OMEPRAZOLE
  10. TRAMADOL. [Concomitant]
     Active Substance: TRAMADOL
  11. HUMIRA [Suspect]
     Active Substance: ADALIMUMAB
     Indication: PSORIASIS
     Dosage: 1 INJECTION WEEKLY INTO ABDOMEN
     Dates: start: 20150717, end: 20151120
  12. HUMIRA [Suspect]
     Active Substance: ADALIMUMAB
     Indication: ARTHRITIS
     Dosage: 1 INJECTION WEEKLY INTO ABDOMEN
     Dates: start: 20150717, end: 20151120
  13. HCTZ [Concomitant]
     Active Substance: HYDROCHLOROTHIAZIDE
  14. GLIPIZIDE. [Concomitant]
     Active Substance: GLIPIZIDE
  15. CELEBREX [Concomitant]
     Active Substance: CELECOXIB

REACTIONS (1)
  - Pulmonary embolism [None]

NARRATIVE: CASE EVENT DATE: 20151124
